FAERS Safety Report 17657356 (Version 1)
Quarter: 2020Q2

REPORT INFORMATION
  Report Type: Spontaneous
  Country: US (occurrence: US)
  Receive Date: 20200410
  Receipt Date: 20200410
  Transmission Date: 20200713
  Serious: No
  Sender: FDA-Public Use
  Company Number: US-NEPHRON PHARMACEUTICALS CORPORATION-2082656

PATIENT
  Age: 70 Year
  Sex: Female
  Weight: 51.36 kg

DRUGS (1)
  1. SODIUM CHLORIDE 3% INHALATION SOLUTION [Suspect]
     Active Substance: SODIUM CHLORIDE
     Indication: BRONCHIECTASIS
     Route: 055

REACTIONS (1)
  - Dysgeusia [Not Recovered/Not Resolved]
